FAERS Safety Report 5338720-7 (Version None)
Quarter: 2007Q2

REPORT INFORMATION
  Report Type: 
  Country: None (occurrence: None)
  Receive Date: 20070530
  Receipt Date: 20070522
  Transmission Date: 20071010
  Serious: Yes (Hospitalization)
  Sender: FDA-Public Use
  Company Number: B0471870A

PATIENT
  Age: 53 Year
  Sex: Male

DRUGS (6)
  1. VENTOLIN [Suspect]
     Indication: ASTHMA
     Dosage: 1PUFF AS REQUIRED
     Route: 055
     Dates: start: 20070522, end: 20070522
  2. SERETIDE [Concomitant]
     Route: 055
  3. PREDNISOLONE [Concomitant]
  4. ATROVENT [Concomitant]
  5. NICORETTE INHALATOR [Concomitant]
  6. BECONASE [Concomitant]

REACTIONS (3)
  - FLUSHING [None]
  - MALAISE [None]
  - PALPITATIONS [None]
